FAERS Safety Report 6679623-5 (Version None)
Quarter: 2010Q2

REPORT INFORMATION
  Report Type: 
  Country: None (occurrence: None)
  Receive Date: 20100413
  Receipt Date: 20100409
  Transmission Date: 20101027
  Serious: Yes (Hospitalization)
  Sender: FDA-Public Use
  Company Number: A0781622A

PATIENT
  Age: 62 Year
  Sex: Female

DRUGS (7)
  1. AVANDIA [Suspect]
     Route: 048
     Dates: start: 20020701, end: 20021201
  2. LESCOL [Concomitant]
  3. PRANDIN [Concomitant]
  4. SYNTHROID [Concomitant]
  5. NEURONTIN [Concomitant]
  6. PREMARIN [Concomitant]
  7. PRAVACHOL [Concomitant]

REACTIONS (3)
  - ACUTE MYOCARDIAL INFARCTION [None]
  - CORONARY ARTERY DISEASE [None]
  - ISCHAEMIC CARDIOMYOPATHY [None]
